FAERS Safety Report 4344263-X (Version None)
Quarter: 2004Q2

REPORT INFORMATION
  Report Type: 
  Country: None (occurrence: None)
  Receive Date: 20040420
  Receipt Date: 20040409
  Transmission Date: 20050107
  Serious: Yes (Other)
  Sender: FDA-Public Use
  Company Number: GB-JNJFOC-20040203730

PATIENT
  Sex: Female

DRUGS (1)
  1. DOXORUBICIN HCL [Suspect]
     Indication: DRUG USE FOR UNKNOWN INDICATION
     Dosage: 3 CYCLES

REACTIONS (3)
  - CAROTID ARTERY OCCLUSION [None]
  - ISCHAEMIC STROKE [None]
  - TUMOUR EMBOLISM [None]
